FAERS Safety Report 21093825 (Version 2)
Quarter: 2022Q3

REPORT INFORMATION
  Report Type: Spontaneous
  Country: BR (occurrence: BR)
  Receive Date: 20220718
  Receipt Date: 20220729
  Transmission Date: 20221027
  Serious: Yes (Hospitalization, Other)
  Sender: FDA-Public Use
  Company Number: BR-BRISTOL-MYERS SQUIBB COMPANY-2022-070738

PATIENT
  Age: 63 Year
  Sex: Male

DRUGS (6)
  1. REVLIMID [Suspect]
     Active Substance: LENALIDOMIDE
     Indication: Plasma cell myeloma
     Dosage: DOSE : 15 MG;  FREQ : INITIAL THERAPY: UNAVAILABLE;?15MG/DAY?SEP/2019: 15MG/ EVERY OTHER DAY.
     Route: 065
     Dates: start: 20190123
  2. REVLIMID [Suspect]
     Active Substance: LENALIDOMIDE
     Route: 065
     Dates: start: 201907
  3. REVLIMID [Suspect]
     Active Substance: LENALIDOMIDE
     Route: 065
     Dates: start: 201909
  4. REVLIMID [Suspect]
     Active Substance: LENALIDOMIDE
     Route: 065
     Dates: start: 202011
  5. DEXAMETHASONE [Concomitant]
     Active Substance: DEXAMETHASONE
     Indication: Product used for unknown indication
     Route: 065
     Dates: start: 20190123
  6. DARATUMUMAB [Concomitant]
     Active Substance: DARATUMUMAB
     Route: 065
     Dates: start: 20190123

REACTIONS (12)
  - Diarrhoea [Unknown]
  - Muscle spasms [Unknown]
  - Thrombocytopenia [Recovered/Resolved]
  - Diabetes mellitus [Unknown]
  - Syncope [Recovering/Resolving]
  - Upper respiratory tract infection [Unknown]
  - Femur fracture [Unknown]
  - Road traffic accident [Unknown]
  - Hypomagnesaemia [Unknown]
  - Orchitis [Unknown]
  - Pneumonia [Unknown]
  - Escherichia urinary tract infection [Unknown]

NARRATIVE: CASE EVENT DATE: 20190301
